FAERS Safety Report 13070162 (Version 1)
Quarter: 2016Q4

REPORT INFORMATION
  Report Type: Spontaneous
  Country: US (occurrence: US)
  Receive Date: 20161228
  Receipt Date: 20161228
  Transmission Date: 20170207
  Serious: No
  Sender: FDA-Public Use
  Company Number: US-ASTRAZENECA-2016SF32163

PATIENT
  Age: 22780 Day
  Sex: Male
  Weight: 72.6 kg

DRUGS (1)
  1. BYDUREON [Suspect]
     Active Substance: EXENATIDE
     Indication: TYPE 2 DIABETES MELLITUS
     Route: 058
     Dates: start: 201609

REACTIONS (3)
  - Device malfunction [Unknown]
  - Injection site nodule [Unknown]
  - Underdose [Unknown]

NARRATIVE: CASE EVENT DATE: 20161128
